FAERS Safety Report 20462237 (Version 1)
Quarter: 2022Q1

REPORT INFORMATION
  Report Type: Spontaneous
  Country: DE (occurrence: DE)
  Receive Date: 20220211
  Receipt Date: 20220211
  Transmission Date: 20220423
  Serious: Yes (Hospitalization)
  Sender: FDA-Public Use
  Company Number: DE-NOVARTISPH-GXKR2006DE03426

PATIENT
  Age: 22 Year
  Sex: Female

DRUGS (3)
  1. LAMOTRIGINE [Interacting]
     Active Substance: LAMOTRIGINE
     Indication: Bipolar disorder
     Dosage: 250 MG, QD
     Route: 065
  2. ESCITALOPRAM [Interacting]
     Active Substance: ESCITALOPRAM OXALATE
     Indication: Depression
     Dosage: 30 MG, QD
     Route: 065
  3. ESCITALOPRAM [Interacting]
     Active Substance: ESCITALOPRAM OXALATE
     Indication: Bipolar disorder

REACTIONS (2)
  - Myoclonus [Unknown]
  - Drug interaction [Unknown]
